FAERS Safety Report 12979132 (Version 1)
Quarter: 2016Q4

REPORT INFORMATION
  Report Type: Spontaneous
  Country: BR (occurrence: BR)
  Receive Date: 20161128
  Receipt Date: 20161128
  Transmission Date: 20170207
  Serious: Yes (Hospitalization, Other)
  Sender: FDA-Public Use
  Company Number: BR-GLAXOSMITHKLINE-BR2016GSK172559

PATIENT
  Sex: Male

DRUGS (5)
  1. METICORTEN [Concomitant]
     Active Substance: PREDNISONE
     Indication: BRONCHITIS
     Dosage: 20 MG, QD
     Route: 048
  2. BEROTEC [Concomitant]
     Active Substance: FENOTEROL HYDROBROMIDE
     Indication: BRONCHITIS
     Dosage: 5 UNK, UNK
     Route: 055
  3. ATROVENT [Concomitant]
     Active Substance: IPRATROPIUM BROMIDE
     Indication: BRONCHITIS
     Dosage: 20 UNK, UNK
     Route: 055
  4. COMBODART [Suspect]
     Active Substance: DUTASTERIDE\TAMSULOSIN
     Indication: PROSTATOMEGALY
     Dosage: 1 DF, QD
     Route: 048
  5. AEROLIN [Suspect]
     Active Substance: ALBUTEROL
     Indication: BRONCHITIS
     Route: 055

REACTIONS (7)
  - Jaundice [Recovering/Resolving]
  - Hepatic cirrhosis [Unknown]
  - Bronchitis [Unknown]
  - Pneumonia [Recovered/Resolved]
  - Urinary retention [Unknown]
  - Liver disorder [Recovering/Resolving]
  - Drug ineffective [Unknown]

NARRATIVE: CASE EVENT DATE: 20161014
